FAERS Safety Report 10593491 (Version 1)
Quarter: 2014Q4

REPORT INFORMATION
  Report Type: Spontaneous
  Country: CH (occurrence: CH)
  Receive Date: 20141119
  Receipt Date: 20141119
  Transmission Date: 20150529
  Serious: Yes (Hospitalization)
  Sender: FDA-Public Use
  Company Number: CH-JNJFOC-20141110849

PATIENT
  Age: 59 Year
  Sex: Female

DRUGS (10)
  1. ACTEMRA [Suspect]
     Active Substance: TOCILIZUMAB
     Indication: ARTHRALGIA
     Dosage: 3 DOSAGES TOTAL
     Route: 058
     Dates: start: 201405, end: 201408
  2. SIMPONI [Suspect]
     Active Substance: GOLIMUMAB
     Indication: ARTHRALGIA
     Route: 058
     Dates: start: 2013, end: 2013
  3. IMUREK [Suspect]
     Active Substance: AZATHIOPRINE
     Indication: ARTHRALGIA
     Route: 048
     Dates: start: 200609, end: 200702
  4. CALCIMAGON [Concomitant]
     Active Substance: CALCIUM
     Route: 065
  5. PALEXIA [Concomitant]
     Active Substance: TAPENTADOL HYDROCHLORIDE
     Route: 065
  6. MEFENAMIC-ACID [Concomitant]
     Active Substance: MEFENAMIC ACID
     Route: 065
  7. HUMIRA [Suspect]
     Active Substance: ADALIMUMAB
     Indication: ARTHRALGIA
     Dosage: 3 DOSAGES TOTAL
     Route: 058
     Dates: start: 2013, end: 2014
  8. OMEPRAZOLE. [Concomitant]
     Active Substance: OMEPRAZOLE
     Route: 065
  9. MAGNESIUM DIASPORAL [Concomitant]
     Route: 065
  10. URSODIOL. [Concomitant]
     Active Substance: URSODIOL
     Route: 065

REACTIONS (4)
  - Leukopenia [Unknown]
  - Blast cells present [Unknown]
  - Thrombocytopenia [Unknown]
  - Acute myeloid leukaemia [Unknown]

NARRATIVE: CASE EVENT DATE: 201408
